FAERS Safety Report 9605765 (Version 2)
Quarter: 2013Q4

REPORT INFORMATION
  Report Type: Report from Study
  Country: JP (occurrence: JP)
  Receive Date: 20131008
  Receipt Date: 20131015
  Transmission Date: 20140711
  Serious: Yes (Death, Other)
  Sender: FDA-Public Use
  Company Number: JP-TAKEDA-TCI2013A05938

PATIENT
  Age: 90 Year
  Sex: Female
  Weight: 40 kg

DRUGS (6)
  1. ALOGLIPTIN [Suspect]
     Indication: TYPE 2 DIABETES MELLITUS
     Dosage: 25 MG, QD
     Route: 048
     Dates: start: 20120725, end: 20130430
  2. SARPOGRELATE HYDROCHLORIDE [Concomitant]
     Route: 048
  3. SARPOGRELATE HYDROCHLORIDE [Concomitant]
     Route: 048
  4. CARBOCISTEINE [Concomitant]
     Route: 048
  5. PRAVASTATIN SODIUM [Concomitant]
     Route: 048
  6. PROPIVERINE HYDROCHLORIDE [Concomitant]
     Route: 048

REACTIONS (2)
  - Acute respiratory failure [Fatal]
  - Myocardial infarction [Fatal]
